FAERS Safety Report 4420641-5 (Version None)
Quarter: 2004Q3

REPORT INFORMATION
  Report Type: 
  Country: None (occurrence: None)
  Receive Date: 20040809
  Receipt Date: 20040413
  Transmission Date: 20050211
  Serious: No
  Sender: FDA-Public Use
  Company Number: US-GLAXOSMITHKLINE-A0506936A

PATIENT
  Age: 76 Year
  Sex: Female

DRUGS (4)
  1. PAXIL [Suspect]
     Indication: DEPRESSION
     Route: 048
     Dates: start: 19940101, end: 20020101
  2. VIOXX [Concomitant]
  3. IMITREX [Concomitant]
  4. ACIPHEX [Concomitant]

REACTIONS (4)
  - HEADACHE [None]
  - LETHARGY [None]
  - NAUSEA [None]
  - VOMITING [None]
